FAERS Safety Report 16950412 (Version 1)
Quarter: 2019Q4

REPORT INFORMATION
  Report Type: Spontaneous
  Country: CA (occurrence: CA)
  Receive Date: 20191023
  Receipt Date: 20191023
  Transmission Date: 20200122
  Serious: Yes (Hospitalization)
  Sender: FDA-Public Use
  Company Number: CA-ACCORD-158627

PATIENT
  Age: 52 Year
  Sex: Female

DRUGS (1)
  1. ACETAZOLAMIDE. [Suspect]
     Active Substance: ACETAZOLAMIDE
     Indication: IDIOPATHIC INTRACRANIAL HYPERTENSION
     Dosage: DOSE TAPERED 500-750 MG

REACTIONS (7)
  - Pyrexia [Unknown]
  - Somnolence [Unknown]
  - Hypercapnia [Unknown]
  - Cough [Unknown]
  - Metabolic acidosis [Unknown]
  - Dyspnoea [Unknown]
  - Respiratory acidosis [Unknown]
